FAERS Safety Report 8559634-5 (Version None)
Quarter: 2012Q3

REPORT INFORMATION
  Report Type: 
  Country: None (occurrence: None)
  Receive Date: 20120802
  Receipt Date: 20120719
  Transmission Date: 20120928
  Serious: No
  Sender: FDA-Public Use
  Company Number: US-BAYER-2012-073052

PATIENT
  Age: 86 Year
  Sex: Male
  Weight: 108.84 kg

DRUGS (4)
  1. ALEVE (CAPLET) [Suspect]
     Dosage: 2 DF, QD
     Route: 048
     Dates: start: 20111201
  2. XANAX [Concomitant]
  3. ANTINEOPLASTIC AGENTS [Concomitant]
  4. ZOCOR [Concomitant]

REACTIONS (1)
  - ABDOMINAL DISCOMFORT [None]
